FAERS Safety Report 7536664-3 (Version None)
Quarter: 2011Q2

REPORT INFORMATION
  Report Type: 
  Country: None (occurrence: None)
  Receive Date: 20110609
  Receipt Date: 20101222
  Transmission Date: 20111010
  Serious: Yes (Other)
  Sender: FDA-Public Use
  Company Number: A0901418A

PATIENT
  Age: 63 Year
  Sex: Female

DRUGS (13)
  1. ADVAIR DISKUS 100/50 [Suspect]
     Indication: CHRONIC OBSTRUCTIVE PULMONARY DISEASE
     Dosage: 1PUFF TWICE PER DAY
     Route: 055
     Dates: start: 20050101
  2. BLOOD PRESSURE MEDICATION [Concomitant]
  3. PRAVASTATIN [Concomitant]
  4. ANTIBIOTIC [Concomitant]
  5. AMITRIPTYLINE HYDROCHLORIDE [Concomitant]
  6. ALLERGY SHOTS [Concomitant]
  7. ZYRTEC [Concomitant]
  8. CLONAZEPAM [Concomitant]
  9. GABAPENTIN [Concomitant]
  10. LISINOPRIL AND HYDROCHLOROTHIAZIDE [Concomitant]
  11. NIFEDIPINE [Concomitant]
  12. OTHER MEDICATIONS [Concomitant]
  13. SINGULAIR [Concomitant]

REACTIONS (3)
  - ANGINA PECTORIS [None]
  - PRODUCT QUALITY ISSUE [None]
  - DYSPNOEA [None]
